FAERS Safety Report 15664715 (Version 2)
Quarter: 2019Q1

REPORT INFORMATION
  Report Type: Spontaneous
  Country: FR (occurrence: FR)
  Receive Date: 20181128
  Receipt Date: 20190223
  Transmission Date: 20190417
  Serious: Yes (Death)
  Sender: FDA-Public Use
  Company Number: FR-ACCORD-094018

PATIENT
  Age: 88 Year
  Sex: Male

DRUGS (15)
  1. SILODOSIN. [Concomitant]
     Active Substance: SILODOSIN
  2. ATORVASTATIN/ATORVASTATIN CALCIUM [Concomitant]
  3. PARACETAMOL [Concomitant]
     Active Substance: ACETAMINOPHEN
  4. UVEDOSE [Concomitant]
     Active Substance: CHOLECALCIFEROL
  5. CLOPIDOGREL [Suspect]
     Active Substance: CLOPIDOGREL BISULFATE
     Indication: ISCHAEMIC HEART DISEASE PROPHYLAXIS
     Route: 048
     Dates: start: 20171223, end: 20171225
  6. SOLIFENACIN/SOLIFENACIN SUCCINATE [Concomitant]
  7. FUROSEMIDE. [Concomitant]
     Active Substance: FUROSEMIDE
  8. PERMIXON [Concomitant]
     Active Substance: HERBALS\SAW PALMETTO
  9. LOVENOX [Suspect]
     Active Substance: ENOXAPARIN SODIUM
     Indication: ANTICOAGULANT THERAPY
     Dosage: (MAMMAL / PORK / INTESTINAL MUCOSA)
     Route: 058
     Dates: start: 20171222, end: 20171228
  10. MEDROL [Concomitant]
     Active Substance: METHYLPREDNISOLONE
  11. METHOTREXATE/METHOTREXATE SODIUM [Concomitant]
  12. KARDEGIC [Suspect]
     Active Substance: ASPIRIN DL-LYSINE
     Indication: ISCHAEMIC HEART DISEASE PROPHYLAXIS
     Route: 048
     Dates: start: 20171226, end: 20171231
  13. DIFFU K [Concomitant]
     Active Substance: POTASSIUM CHLORIDE
  14. BISOPROLOL [Concomitant]
     Active Substance: BISOPROLOL
  15. ELIQUIS [Suspect]
     Active Substance: APIXABAN
     Indication: ATRIAL FIBRILLATION
     Route: 048
     Dates: start: 20171227, end: 20171231

REACTIONS (1)
  - Intra-abdominal haemorrhage [Fatal]

NARRATIVE: CASE EVENT DATE: 20171230
